FAERS Safety Report 9607585 (Version 1)
Quarter: 2013Q4

REPORT INFORMATION
  Report Type: Spontaneous
  Country: GB (occurrence: None)
  Receive Date: 20131004
  Receipt Date: 20131004
  Transmission Date: 20140711
  Serious: Yes (Hospitalization, Other)
  Sender: FDA-Public Use
  Company Number: AUR-APL-2013-08082

PATIENT
  Age: 60 Year
  Sex: Male

DRUGS (4)
  1. SIMVASTATIN [Suspect]
     Indication: PRODUCT USED FOR UNKNOWN INDICATION
     Route: 048
  2. CLOPIDOGREL (CLOPIDOGREL) [Concomitant]
  3. LANSOPRAZOL (LANSOPRAZOLE) [Concomitant]
  4. LEVETIRACETAM (LEVETIRACETAM) [Concomitant]

REACTIONS (2)
  - Convulsion [None]
  - Convulsive threshold lowered [None]
